FAERS Safety Report 4340943-0 (Version None)
Quarter: 2004Q2

REPORT INFORMATION
  Report Type: 
  Country: None (occurrence: None)
  Receive Date: 20040413
  Receipt Date: 20040401
  Transmission Date: 20050107
  Serious: Yes (Hospitalization)
  Sender: FDA-Public Use
  Company Number: FR-JNJFOC-20040200183

PATIENT
  Age: 74 Year
  Sex: Female
  Weight: 63.3 kg

DRUGS (5)
  1. RISPERDAL CONSTA [Suspect]
     Indication: PSYCHOTIC DISORDER
     Dosage: 25-37.5 MG, 1 IN 2 WEEK, INTRA-MUSCULAR
     Route: 030
     Dates: start: 20031209, end: 20040123
  2. RISPERDAL CONSTA [Suspect]
     Indication: PSYCHOTIC DISORDER
     Dosage: 25-37.5 MG, 1 IN 2 WEEK, INTRA-MUSCULAR
     Route: 030
     Dates: start: 20040123
  3. RISPERIDONE [Concomitant]
  4. PAROXETINE HCL [Concomitant]
  5. STILNOX (ZOLPIDEM) [Concomitant]

REACTIONS (12)
  - AUTOMATISM [None]
  - DELUSION [None]
  - DEPRESSION [None]
  - DISEASE RECURRENCE [None]
  - ELECTROENCEPHALOGRAM ABNORMAL [None]
  - EXTRAPYRAMIDAL DISORDER [None]
  - HALLUCINATION, AUDITORY [None]
  - PERSECUTORY DELUSION [None]
  - TREMOR [None]
  - VIRAL INFECTION [None]
  - VOCAL CORD DISORDER [None]
  - VOCAL CORD PARESIS [None]
